FAERS Safety Report 9717825 (Version 1)
Quarter: 2013Q4

REPORT INFORMATION
  Report Type: Spontaneous
  Country: US (occurrence: US)
  Receive Date: 20131125
  Receipt Date: 20131125
  Transmission Date: 20140711
  Serious: No
  Sender: FDA-Public Use
  Company Number: US-VIVUS-2012V1000248

PATIENT
  Age: 60 Year
  Sex: Female
  Weight: 102.6 kg

DRUGS (6)
  1. QSYMIA 3.75MG/23MG [Suspect]
     Indication: WEIGHT DECREASED
     Dosage: DAILY DOSE: 1 CAPSULE,
     Route: 048
     Dates: start: 20121103
  2. PANTOPRAZOLE [Concomitant]
     Indication: GASTROOESOPHAGEAL REFLUX DISEASE
     Route: 048
  3. ENDOCET [Concomitant]
     Indication: PAIN IN EXTREMITY
     Dosage: DAILY DOSE: .5 TABLET,
  4. DIAZEPAM [Concomitant]
     Indication: SLEEP DISORDER
     Dosage: DAILY DOSE: 1 TABLET,
  5. MOTRIN [Concomitant]
     Indication: PAIN
  6. MOTRIN [Concomitant]
     Indication: SWELLING

REACTIONS (5)
  - Haematochezia [Not Recovered/Not Resolved]
  - Pain [Recovered/Resolved]
  - Hunger [Not Recovered/Not Resolved]
  - Weight increased [Not Recovered/Not Resolved]
  - Inappropriate schedule of drug administration [Unknown]
